FAERS Safety Report 9245376 (Version 3)
Quarter: 2013Q2

REPORT INFORMATION
  Report Type: Spontaneous
  Country: BR (occurrence: BR)
  Receive Date: 20130422
  Receipt Date: 20130604
  Transmission Date: 20140414
  Serious: Yes (Hospitalization)
  Sender: FDA-Public Use
  Company Number: BR-PFIZER INC-2013122426

PATIENT
  Age: 40 Year
  Sex: Female
  Weight: 67 kg

DRUGS (15)
  1. ATENOLOL [Suspect]
     Indication: HYPERTENSION
     Dosage: 0.5 DF, DAILY
     Route: 048
     Dates: start: 2011, end: 201302
  2. ATENOLOL [Suspect]
     Indication: TACHYCARDIA
     Dosage: 25 MG, DAILY
     Route: 048
     Dates: start: 201302, end: 201302
  3. ATENOLOL [Suspect]
     Dosage: 0.5 DF, 2X/DAY
     Route: 048
     Dates: start: 201302, end: 201304
  4. OMEPRAZOLE [Suspect]
     Indication: DYSPEPSIA
     Dosage: AS REQUIRED
     Route: 048
     Dates: start: 1993
  5. SELOZOK [Suspect]
     Indication: TACHYCARDIA
     Dosage: 25 MG, DAILY
     Route: 048
     Dates: start: 20130418
  6. SELOZOK [Suspect]
     Dosage: 0.5 MG, DAILY
     Route: 048
  7. SELOZOK [Suspect]
     Dosage: 25 MG, ALTERNATE DAY
     Route: 048
     Dates: end: 20130418
  8. RANITIDINE [Suspect]
     Indication: DYSPEPSIA
     Dosage: AS REQUIRED
     Route: 065
     Dates: start: 1993, end: 2013
  9. ALOPURINOL ^BELUPO^ [Concomitant]
     Indication: MYELOFIBROSIS
     Dosage: UNK
     Route: 065
     Dates: start: 1993
  10. ALOPURINOL ^BELUPO^ [Concomitant]
     Indication: BLOOD URIC ACID
  11. HYDREA [Concomitant]
     Indication: MYELOFIBROSIS
     Dosage: UNK
     Route: 065
     Dates: start: 1993
  12. VITAMIN D [Concomitant]
     Indication: OSTEOPOROSIS
     Dosage: UNK
     Route: 065
  13. VITAMIN D [Concomitant]
     Indication: OSTEOPENIA
  14. ALENDRONATE SODIUM [Concomitant]
     Indication: OSTEOPOROSIS
     Dosage: UNK
     Route: 065
  15. ALENDRONATE SODIUM [Concomitant]
     Indication: OSTEOPENIA

REACTIONS (16)
  - Haemoglobin decreased [Recovered/Resolved]
  - Headache [Recovered/Resolved]
  - Hypoaesthesia [Not Recovered/Not Resolved]
  - Somnolence [Not Recovered/Not Resolved]
  - Disturbance in attention [Not Recovered/Not Resolved]
  - Visual impairment [Not Recovered/Not Resolved]
  - Nervousness [Not Recovered/Not Resolved]
  - Diarrhoea [Not Recovered/Not Resolved]
  - Gastrointestinal disorder [Not Recovered/Not Resolved]
  - Off label use [Recovering/Resolving]
  - Psychiatric symptom [Not Recovered/Not Resolved]
  - Alopecia [Not Recovered/Not Resolved]
  - Insomnia [Recovering/Resolving]
  - Weight increased [Not Recovered/Not Resolved]
  - Fatigue [Not Recovered/Not Resolved]
  - Heart rate decreased [Not Recovered/Not Resolved]
